FAERS Safety Report 6614545-7 (Version None)
Quarter: 2010Q1

REPORT INFORMATION
  Report Type: 
  Country: None (occurrence: None)
  Receive Date: 20100304
  Receipt Date: 20100304
  Transmission Date: 20100710
  Serious: Yes (Other)
  Sender: FDA-Public Use
  Company Number: None

PATIENT
  Age: 75 Year
  Sex: Male
  Weight: 119.5228 kg

DRUGS (2)
  1. FUROSEMIDE [Suspect]
     Indication: DIURETIC THERAPY
     Dosage: 40 MG 1 DAILY
     Dates: start: 20100218
  2. FUROSEMIDE [Suspect]
     Indication: DIURETIC THERAPY
     Dosage: 40 MG 1 DAILY
     Dates: start: 20100222

REACTIONS (4)
  - DYSPNOEA [None]
  - NERVOUSNESS [None]
  - PALPITATIONS [None]
  - PSYCHOMOTOR HYPERACTIVITY [None]
